FAERS Safety Report 7036946-8 (Version None)
Quarter: 2010Q4

REPORT INFORMATION
  Report Type: 
  Country: None (occurrence: None)
  Receive Date: 20101011
  Receipt Date: 20101005
  Transmission Date: 20110411
  Serious: Yes (Death)
  Sender: FDA-Public Use
  Company Number: US-CELGENEUS-163-20785-10090916

PATIENT
  Sex: Female

DRUGS (2)
  1. THALOMID [Suspect]
     Indication: MULTIPLE MYELOMA
     Route: 048
     Dates: start: 20100623, end: 20100701
  2. THALOMID [Suspect]
     Route: 048
     Dates: start: 20100701, end: 20100803

REACTIONS (2)
  - MULTIPLE MYELOMA [None]
  - RENAL FAILURE CHRONIC [None]
